FAERS Safety Report 17961321 (Version 1)
Quarter: 2020Q2

REPORT INFORMATION
  Report Type: Report from Study
  Country: GB (occurrence: GB)
  Receive Date: 20200630
  Receipt Date: 20200630
  Transmission Date: 20200714
  Serious: Yes (Other)
  Sender: FDA-Public Use
  Company Number: GB-ROCHE-2620671

PATIENT
  Sex: Female

DRUGS (3)
  1. PERJETA [Suspect]
     Active Substance: PERTUZUMAB
     Indication: HER2 POSITIVE BREAST CANCER
     Route: 065
  2. HERCEPTIN [Suspect]
     Active Substance: TRASTUZUMAB
     Indication: HER2 POSITIVE BREAST CANCER
     Route: 065
  3. DOCETAXEL. [Concomitant]
     Active Substance: DOCETAXEL

REACTIONS (15)
  - Ill-defined disorder [Unknown]
  - Neutropenic sepsis [Unknown]
  - Product dose omission [Unknown]
  - Feeling abnormal [Unknown]
  - Injection site pain [Unknown]
  - Inappropriate schedule of product administration [Unknown]
  - Chest pain [Unknown]
  - Sensory loss [Unknown]
  - Back pain [Unknown]
  - Pain [Unknown]
  - Fatigue [Unknown]
  - Feeling drunk [Unknown]
  - Arthralgia [Unknown]
  - Diarrhoea infectious [Unknown]
  - Malaise [Unknown]
